FAERS Safety Report 5765262-7 (Version None)
Quarter: 2008Q2

REPORT INFORMATION
  Report Type: 
  Country: None (occurrence: None)
  Receive Date: 20080609
  Receipt Date: 20080609
  Transmission Date: 20081010
  Serious: Yes (Other)
  Sender: FDA-Public Use
  Company Number: None

PATIENT
  Age: 40 Year
  Sex: Female
  Weight: 80.7403 kg

DRUGS (2)
  1. LEVAQUIN [Suspect]
     Indication: URINARY TRACT INFECTION
     Dosage: 750 DAILY PO
     Route: 048
     Dates: start: 20071216, end: 20071230
  2. LEVAQUIN [Suspect]
     Dosage: 500 DAILY PO

REACTIONS (1)
  - COUGH [None]
